FAERS Safety Report 17303439 (Version 1)
Quarter: 2020Q1

REPORT INFORMATION
  Report Type: Spontaneous
  Country: IT (occurrence: IT)
  Receive Date: 20200122
  Receipt Date: 20200122
  Transmission Date: 20200409
  Serious: Yes (Other)
  Sender: FDA-Public Use
  Company Number: IT-ANIPHARMA-2020-IT-000013

PATIENT
  Age: 74 Year
  Sex: Female

DRUGS (1)
  1. CANDESARTAN CILEXETIL. [Suspect]
     Active Substance: CANDESARTAN CILEXETIL
     Indication: PRODUCT USED FOR UNKNOWN INDICATION
     Dosage: UNK
     Route: 048

REACTIONS (3)
  - Pruritus [Unknown]
  - Epidermal necrosis [Unknown]
  - Erythema multiforme [Unknown]

NARRATIVE: CASE EVENT DATE: 20170101
